FAERS Safety Report 4415591-4 (Version None)
Quarter: 2004Q2

REPORT INFORMATION
  Report Type: 
  Country: None (occurrence: None)
  Receive Date: 20040630
  Receipt Date: 20040310
  Transmission Date: 20050107
  Serious: Yes (Other)
  Sender: FDA-Public Use
  Company Number: 2003126351

PATIENT
  Age: 45 Year
  Sex: Female

DRUGS (51)
  1. ZOLOFT [Suspect]
     Indication: DEPRESSION
     Dosage: DAILY ORAL
     Route: 048
     Dates: start: 20000918, end: 20031201
  2. CYCLOBENZAPRINE HYDROCHLORIDE [Suspect]
     Indication: MUSCLE SPASMS
     Dosage: 30 MG TID ORAL
     Route: 048
     Dates: start: 20020610, end: 20031101
  3. METHADONE HCL [Concomitant]
  4. ORLISTAT [Concomitant]
  5. BACLOFEN [Concomitant]
  6. HYOSCYAMINE SULFATE [Concomitant]
  7. KLIOGEST ^NOVO INDUSTRI^ (ESTRADIOL, NORETHISTERONE ACETATE) [Concomitant]
  8. TRAZODONE [Concomitant]
  9. PROPACET 100 [Concomitant]
  10. MECLIZINE [Concomitant]
  11. CIPROFLOXACIN [Concomitant]
  12. LORAZEPAM [Concomitant]
  13. CARBAMAZEPINE [Concomitant]
  14. OXYCOCET (PARACETAMOL, OXYCODONE HYDROCHLORIDE) [Concomitant]
  15. OXYCODONE HCL [Concomitant]
  16. TOPIRMATE [Concomitant]
  17. TIZANIDINE HYDROCHLORIDE [Concomitant]
  18. ESTRATEST HS (METHYLTESTOSTERONE, ESTROGENS ESTERIFIED) [Concomitant]
  19. CLINDAMYCIN HYDROCHLORIDE [Concomitant]
  20. METHYLPREDNISOLONE [Concomitant]
  21. ALPRAZOLAM [Concomitant]
  22. GALENIC/PARACETAMOL/CODEINE/ (CODEINE, PARACETAMOL) [Concomitant]
  23. POTASSIUM CHLORIDE [Concomitant]
  24. BENZOYL PEROXIDE [Concomitant]
  25. DICLOFENAC SODIUM [Concomitant]
  26. VICODIN [Concomitant]
  27. VENLAFAXINE HCL [Concomitant]
  28. COLYTE ^REED^ (SODIUM BICARBONATE, POTASSIUM CHLORIDE, SODIUM CHLORIDE [Concomitant]
  29. BUDESONIDE [Concomitant]
  30. TRIMETHOBENZAMIDE [Concomitant]
  31. DIAZEPAM [Concomitant]
  32. METHOCARBAMOL [Concomitant]
  33. OMEPRAZOLE [Concomitant]
  34. VICODIN [Concomitant]
  35. DOXYCYCLINE [Concomitant]
  36. AMITRIPTYLINE HCL [Concomitant]
  37. LIBRAX [Concomitant]
  38. ERYTHROMYCIN [Concomitant]
  39. NORETHISTERONE ACETATE (NORETHISTERONE ACETATE) [Concomitant]
  40. TRAMADOL HYDROCHLORIDE [Concomitant]
  41. DANAZOL [Concomitant]
  42. LEUPROLIDE ACETATE [Concomitant]
  43. GUAIFENESIN [Concomitant]
  44. NEOMYCIN [Concomitant]
  45. KETOROLAC TROMETHAMINE [Concomitant]
  46. CEPHALEXIN [Concomitant]
  47. TOLMETIN SODIUM [Concomitant]
  48. ALL OTHER THERAPEUTIC PRODUCTS [Concomitant]
  49. ZOLPIDEM TARTRATE [Concomitant]
  50. DICYCLOVERINE [Concomitant]
  51. VICODIN [Concomitant]

REACTIONS (12)
  - ABNORMAL BEHAVIOUR [None]
  - ARTHRALGIA [None]
  - BACK PAIN [None]
  - CONDITION AGGRAVATED [None]
  - DEPRESSION [None]
  - DRUG INTERACTION [None]
  - JOINT SWELLING [None]
  - MEMORY IMPAIRMENT [None]
  - OEDEMA [None]
  - PAIN [None]
  - SUICIDAL IDEATION [None]
  - WEIGHT INCREASED [None]
